FAERS Safety Report 20568821 (Version 1)
Quarter: 2022Q1

REPORT INFORMATION
  Report Type: Spontaneous
  Country: CH (occurrence: CH)
  Receive Date: 20220308
  Receipt Date: 20220308
  Transmission Date: 20220424
  Serious: Yes (Death, Life-Threatening, Hospitalization, Other)
  Sender: FDA-Public Use
  Company Number: None

PATIENT
  Age: 66 Year
  Sex: Female
  Weight: 62 kg

DRUGS (14)
  1. KEYTRUDA [Suspect]
     Active Substance: PEMBROLIZUMAB
     Dosage: KEYTRUDA (PEMBROLIZUMAB) 200 MG INTRAVENOUS ADMINISTRATION EVERY 21 DAYS FROM 13AUG2020 TO 17DEC2021
     Route: 042
     Dates: start: 20200813, end: 20211217
  2. NOVALGIN (METAMIZOLE SODIUM) [Suspect]
     Active Substance: METAMIZOLE SODIUM
     Indication: Analgesic therapy
     Dosage: METAMIZOL (NOVALGIN ) 500 MG TAKEN ORALLY EVERY 12 HOURS FROM 21JAN2021 TO 07JAN2022; INDICATION: AN
     Route: 048
     Dates: start: 20210121, end: 20220107
  3. TRAZODONE HYDROCHLORIDE [Suspect]
     Active Substance: TRAZODONE HYDROCHLORIDE
     Dosage: TRITTICO (TRAZODON) 50 MG ONCE DAILY, ORAL INTAKE, FOR AN UNKNOWN PERIOD OF TIME
     Route: 048
  4. ESOMEPRAZOLE MAGNESIUM [Suspect]
     Active Substance: ESOMEPRAZOLE MAGNESIUM
     Dosage: ESOMEPRAZOL MEPHA(ESOMEPRAZOL) 40 MG ONCE DAILY, ORAL INTAKE, FOR AN UNKNOWN PERIOD OF TIME
     Route: 048
  5. TORSEMIDE [Suspect]
     Active Substance: TORSEMIDE
     Dosage: TORASEMID SANDOZ ECO (TORASEMID) 20 MG 1?2 DAILY, ORAL INTAKE, FOR AN UNKNOWN PERIOD OF TIME
     Route: 048
  6. LISINOPRIL [Suspect]
     Active Substance: LISINOPRIL
     Dosage: LISINOPRIL MEPHA (LISINOPRIL) 10 MG ONCE DAILY, ORAL INTAKE, FOR AN UNKNOWN PERIOD OF TIME
     Route: 048
  7. CARVEDILOL [Suspect]
     Active Substance: CARVEDILOL
     Dosage: CARVEDILOL MEPHA (CARVEDILOL)10 MG ONCE DAILY, ORAL INTAKE, FOR AN UNKNOWN PERIOD OF TIME
     Route: 048
  8. ROSUVASTATIN CALCIUM [Concomitant]
     Active Substance: ROSUVASTATIN CALCIUM
     Dosage: ROSUVASTATIN MEPHA (ROSUVASTATIN) 20 MG ONCE DAILY
     Route: 048
  9. FOLIC ACID [Concomitant]
     Active Substance: FOLIC ACID
     Dosage: ACIDUM FOLICUM STREULI (FOLIC ACID) 5 MG 1X/WEEK
     Route: 048
  10. CALCIUM\CHOLECALCIFEROL [Concomitant]
     Active Substance: CALCIUM\CHOLECALCIFEROL
     Dosage: CALCIMAGON D3 (CALCIUM / VITAMIN D) 500 MG / 800 IU ONCE DAILY
     Route: 048
  11. PALEXIA [Concomitant]
     Active Substance: TAPENTADOL HYDROCHLORIDE
     Dosage: PALEXIA (TAPENTADOL) 50 MG ONCE DAILY
     Route: 048
  12. DAFALGAN [Concomitant]
     Active Substance: ACETAMINOPHEN
     Dosage: DAFALGAN (PARACETAMOL) 500 MG IN RESERVE
     Route: 048
  13. ANORO ELLIPTA [Concomitant]
     Active Substance: UMECLIDINIUM BROMIDE\VILANTEROL TRIFENATATE
     Dosage: ANORO (VILANTEROL, UMECLIDINIUM) 22 MCG / 55 MCG INHALED ONCE DAILY
     Route: 055
  14. ELIDEL [Concomitant]
     Active Substance: PIMECROLIMUS
     Dosage: ELIDEL (PIMECROLIMUS) CREAM 1% TOPICAL APPLICATION
     Route: 061

REACTIONS (3)
  - Agranulocytosis [Fatal]
  - Septic shock [Fatal]
  - Aplasia [Fatal]

NARRATIVE: CASE EVENT DATE: 20220107
